FAERS Safety Report 9833306 (Version 1)
Quarter: 2014Q1

REPORT INFORMATION
  Report Type: Spontaneous
  Country: US (occurrence: US)
  Receive Date: 20140121
  Receipt Date: 20140121
  Transmission Date: 20141002
  Serious: Yes (Other)
  Sender: FDA-Public Use
  Company Number: US-B.I. PHARMACEUTICALS,INC./RIDGEFIELD-2014-BI-02424BP

PATIENT
  Age: 74 Year
  Sex: Female
  Weight: 61 kg

DRUGS (4)
  1. SPIRIVA [Suspect]
     Indication: CHRONIC OBSTRUCTIVE PULMONARY DISEASE
     Dosage: 18 MCG
     Route: 055
     Dates: start: 2009
  2. METOPROLOL [Concomitant]
     Indication: CARDIAC DISORDER
     Route: 048
  3. SYNTHROID [Concomitant]
     Indication: BASEDOW^S DISEASE
     Route: 048
  4. LEXAPRO [Concomitant]
     Indication: DEPRESSION
     Dosage: 10 MG
     Route: 048

REACTIONS (1)
  - Leukaemia [Unknown]
